FAERS Safety Report 12795687 (Version 2)
Quarter: 2016Q4

REPORT INFORMATION
  Report Type: Spontaneous
  Country: None (occurrence: US)
  Receive Date: 20160929
  Receipt Date: 20161108
  Transmission Date: 20170207
  Serious: No
  Sender: FDA-Public Use
  Company Number: US-RARE DISEASE THERAPEUTICS, INC.-1057849

PATIENT
  Age: 60 Year
  Sex: Male
  Weight: 79.4 kg

DRUGS (14)
  1. CYSTADANE [Suspect]
     Active Substance: BETAINE
     Dates: start: 20160525
  2. FOLBIC [Concomitant]
     Active Substance: CYANOCOBALAMIN\FOLIC ACID\PYRIDOXINE
  3. ULORIC [Concomitant]
     Active Substance: FEBUXOSTAT
  4. COZAAR [Concomitant]
     Active Substance: LOSARTAN POTASSIUM
  5. LISINOPRIL. [Concomitant]
     Active Substance: LISINOPRIL
  6. INDAPAMIDE. [Concomitant]
     Active Substance: INDAPAMIDE
  7. LOPID [Concomitant]
     Active Substance: GEMFIBROZIL
  8. SYNTHROID [Concomitant]
     Active Substance: LEVOTHYROXINE SODIUM
  9. WELCHOL [Concomitant]
     Active Substance: COLESEVELAM HYDROCHLORIDE
  10. NIASPAN [Concomitant]
     Active Substance: NIACIN
  11. ACIPHEX [Concomitant]
     Active Substance: RABEPRAZOLE SODIUM
  12. VITAMIN B12 [Concomitant]
     Active Substance: CYANOCOBALAMIN
  13. CYSTADANE [Suspect]
     Active Substance: BETAINE
     Indication: HOMOCYSTINURIA
     Dates: start: 2013, end: 20160525
  14. FISH OIL [Concomitant]
     Active Substance: FISH OIL

REACTIONS (2)
  - Pain [Not Recovered/Not Resolved]
  - Lethargy [Not Recovered/Not Resolved]

NARRATIVE: CASE EVENT DATE: 20160819
